FAERS Safety Report 10649365 (Version 1)
Quarter: 2014Q4

REPORT INFORMATION
  Report Type: Spontaneous
  Country: US (occurrence: None)
  Receive Date: 20141211
  Receipt Date: 20141211
  Transmission Date: 20150529
  Serious: Yes (Hospitalization)
  Sender: FDA-Public Use
  Company Number: None

PATIENT
  Age: 58 Year
  Sex: Male
  Weight: 58.6 kg

DRUGS (1)
  1. ENOXAPARIN [Suspect]
     Active Substance: ENOXAPARIN
     Indication: THROMBOSIS PROPHYLAXIS
     Route: 058
     Dates: start: 20141001, end: 20141001

REACTIONS (10)
  - Blood pressure systolic decreased [None]
  - Syncope [None]
  - Depressed level of consciousness [None]
  - Haematemesis [None]
  - Haemoglobin decreased [None]
  - Gastric haemorrhage [None]
  - Anaemia [None]
  - Hypotension [None]
  - Duodenal ulcer haemorrhage [None]
  - Tachycardia [None]

NARRATIVE: CASE EVENT DATE: 20141001
